FAERS Safety Report 14895505 (Version 2)
Quarter: 2018Q2

REPORT INFORMATION
  Report Type: Spontaneous
  Country: DE (occurrence: DE)
  Receive Date: 20180515
  Receipt Date: 20180619
  Transmission Date: 20180711
  Serious: Yes (Death, Hospitalization)
  Sender: FDA-Public Use
  Company Number: DE-ROCHE-2121380

PATIENT
  Age: 78 Year
  Sex: Male
  Weight: 75 kg

DRUGS (4)
  1. VINCRISTINE [Suspect]
     Active Substance: VINCRISTINE
     Indication: NON-HODGKIN^S LYMPHOMA
     Route: 042
     Dates: start: 20171115, end: 20180201
  2. MABTHERA [Suspect]
     Active Substance: RITUXIMAB
     Indication: NON-HODGKIN^S LYMPHOMA
     Route: 042
     Dates: start: 20171115, end: 20180131
  3. CYCLOPHOSPHAMID [Suspect]
     Active Substance: CYCLOPHOSPHAMIDE
     Indication: NON-HODGKIN^S LYMPHOMA
     Route: 042
     Dates: start: 20171115, end: 20180201
  4. DOXORUBICIN HCL [Suspect]
     Active Substance: DOXORUBICIN HYDROCHLORIDE
     Indication: NON-HODGKIN^S LYMPHOMA
     Route: 042
     Dates: start: 20171115, end: 20180201

REACTIONS (11)
  - Interstitial lung disease [Fatal]
  - Chemical poisoning [Unknown]
  - Dyspnoea [Unknown]
  - Pneumothorax [Unknown]
  - Respiratory distress [Fatal]
  - Pneumonia [Fatal]
  - Emphysema [Unknown]
  - Pulmonary embolism [Fatal]
  - Pneumomediastinum [Unknown]
  - Hypercapnia [Fatal]
  - Asthenia [Unknown]

NARRATIVE: CASE EVENT DATE: 20180130
